FAERS Safety Report 9551711 (Version 1)
Quarter: 2013Q3

REPORT INFORMATION
  Report Type: Spontaneous
  Country: US (occurrence: US)
  Receive Date: 20130925
  Receipt Date: 20130925
  Transmission Date: 20140515
  Serious: No
  Sender: FDA-Public Use
  Company Number: US-MYLANLABS-2013S1014452

PATIENT
  Age: 42 Year
  Sex: Female

DRUGS (1)
  1. BUTORPHANOL TARTRATE NASAL SPRAY, USP [Suspect]
     Indication: HEADACHE
     Route: 045

REACTIONS (3)
  - Drug ineffective [Not Recovered/Not Resolved]
  - Headache [Not Recovered/Not Resolved]
  - Exposure to extreme temperature [Recovered/Resolved]
